FAERS Safety Report 7681776-7 (Version None)
Quarter: 2011Q3

REPORT INFORMATION
  Report Type: 
  Country: None (occurrence: None)
  Receive Date: 20110812
  Receipt Date: 20110803
  Transmission Date: 20111222
  Serious: Yes (Hospitalization, Other)
  Sender: FDA-Public Use
  Company Number: US-ASTRAZENECA-2011SE19303

PATIENT
  Age: 62 Year
  Sex: Male
  Weight: 81.6 kg

DRUGS (2)
  1. OXYCODONE HCL [Concomitant]
     Indication: BACK DISORDER
  2. CRESTOR [Suspect]
     Indication: HYPERCHOLESTEROLAEMIA
     Route: 048

REACTIONS (7)
  - BACK INJURY [None]
  - SPEECH DISORDER [None]
  - NECK EXPLORATION [None]
  - INTERVERTEBRAL DISC OPERATION [None]
  - SPINAL CORD COMPRESSION [None]
  - SPINAL FUSION SURGERY [None]
  - BACK DISORDER [None]
